FAERS Safety Report 14364435 (Version 1)
Quarter: 2018Q1

REPORT INFORMATION
  Report Type: Spontaneous
  Country: US (occurrence: US)
  Receive Date: 20180106
  Receipt Date: 20180106
  Transmission Date: 20180509
  Serious: No
  Sender: FDA-Public Use
  Company Number: None

PATIENT
  Age: 65 Year
  Sex: Female

DRUGS (1)
  1. STIVARGA [Suspect]
     Active Substance: REGORAFENIB
     Indication: SOFT TISSUE SARCOMA
     Dosage: QD FOR 3 WEEKS ON AND 1 WEEK OFF
     Route: 048
     Dates: start: 20170911

REACTIONS (8)
  - Alopecia [None]
  - Depression [None]
  - Therapy change [None]
  - Fatigue [None]
  - Movement disorder [None]
  - Fall [None]
  - Dizziness [None]
  - Joint injury [None]

NARRATIVE: CASE EVENT DATE: 20180105
